FAERS Safety Report 6575310-2 (Version None)
Quarter: 2010Q1

REPORT INFORMATION
  Report Type: 
  Country: None (occurrence: None)
  Receive Date: 20100209
  Receipt Date: 20100121
  Transmission Date: 20100710
  Serious: Yes (Other)
  Sender: FDA-Public Use
  Company Number: US-JNJFOC-20100109121

PATIENT
  Age: 66 Year
  Sex: Male
  Weight: 97.98 kg

DRUGS (4)
  1. EXTRA STRENGTH TYLENOL [Suspect]
     Route: 048
  2. EXTRA STRENGTH TYLENOL [Suspect]
     Indication: DRUG USE FOR UNKNOWN INDICATION
     Route: 048
  3. VICODIN [Concomitant]
  4. COUMADIN [Concomitant]

REACTIONS (4)
  - ABDOMINAL PAIN UPPER [None]
  - DIARRHOEA [None]
  - PRODUCT QUALITY ISSUE [None]
  - RECTAL HAEMORRHAGE [None]
